FAERS Safety Report 6179392-1 (Version None)
Quarter: 2009Q2

REPORT INFORMATION
  Report Type: 
  Country: None (occurrence: None)
  Receive Date: 20090505
  Receipt Date: 20090427
  Transmission Date: 20091009
  Serious: Yes (Hospitalization, Congenital Anomaly)
  Sender: FDA-Public Use
  Company Number: A0679748A

PATIENT
  Sex: Male

DRUGS (2)
  1. PAXIL [Suspect]
     Indication: PANIC ATTACK
     Dates: start: 19990101, end: 20010101
  2. VITAMIN TAB [Concomitant]

REACTIONS (12)
  - CARDIAC FAILURE CONGESTIVE [None]
  - CHYLOTHORAX [None]
  - COARCTATION OF THE AORTA [None]
  - CONVULSION [None]
  - DOUBLE OUTLET RIGHT VENTRICLE [None]
  - DRUG EXPOSURE DURING PREGNANCY [None]
  - MATERNAL DRUGS AFFECTING FOETUS [None]
  - MULTIPLE CONGENITAL ABNORMALITIES [None]
  - PNEUMOTHORAX [None]
  - PULMONARY ARTERY STENOSIS CONGENITAL [None]
  - SUPRAVENTRICULAR TACHYCARDIA [None]
  - VENTRICULAR SEPTAL DEFECT [None]
